FAERS Safety Report 5835784-9 (Version None)
Quarter: 2008Q3

REPORT INFORMATION
  Report Type: 
  Country: None (occurrence: None)
  Receive Date: 20080724
  Receipt Date: 20080617
  Transmission Date: 20090109
  Serious: No
  Sender: FDA-Public Use
  Company Number: 2008-BP-09405BP

PATIENT
  Sex: Female

DRUGS (1)
  1. APTIVUS [Suspect]
     Indication: HIV INFECTION
     Dosage: (SEE TEXT,TPV/R 250/100)

REACTIONS (1)
  - HEPATOTOXICITY [None]
